FAERS Safety Report 9028425 (Version 2)
Quarter: 2013Q1

REPORT INFORMATION
  Report Type: Spontaneous
  Country: US (occurrence: US)
  Receive Date: 20130124
  Receipt Date: 20130215
  Transmission Date: 20140127
  Serious: Yes (Hospitalization, Other)
  Sender: FDA-Public Use
  Company Number: US-PFIZER INC-2013029179

PATIENT
  Age: 43 Year
  Sex: Female
  Weight: 115 kg

DRUGS (8)
  1. LYRICA [Suspect]
     Indication: SLEEP APNOEA SYNDROME
     Dosage: 100 MG, 2X/DAY
  2. LYRICA [Suspect]
     Indication: DYSKINESIA
  3. LYRICA [Suspect]
     Indication: MUSCLE SPASMS
  4. LYRICA [Suspect]
     Indication: PAIN IN EXTREMITY
  5. METOPROLOL TARTRATE [Suspect]
     Indication: HYPERTENSION
     Dosage: UNK
  6. INSULIN [Concomitant]
     Indication: DIABETES MELLITUS
     Dosage: 25 UNITS DAILY
  7. LISINOPRIL [Concomitant]
     Indication: HYPERTENSION
     Dosage: 20 MG DAILY
  8. FUROSEMIDE [Concomitant]
     Indication: HYPERTENSION
     Dosage: UNK,DAILY

REACTIONS (3)
  - Arnold-Chiari malformation [Unknown]
  - Post procedural complication [Unknown]
  - Hypotension [Unknown]
